FAERS Safety Report 8476203-6 (Version None)
Quarter: 2012Q2

REPORT INFORMATION
  Report Type: 
  Country: None (occurrence: None)
  Receive Date: 20120628
  Receipt Date: 20110708
  Transmission Date: 20120825
  Serious: Yes (Other)
  Sender: FDA-Public Use
  Company Number: US-BAXTER-2011BH023019

PATIENT

DRUGS (4)
  1. CYTOXAN [Suspect]
     Indication: NON-HODGKIN'S LYMPHOMA
     Route: 048
  2. BORTEZOMIB [Suspect]
     Indication: NON-HODGKIN'S LYMPHOMA
     Route: 065
  3. RITUXIMAB [Suspect]
     Indication: NON-HODGKIN'S LYMPHOMA
     Route: 065
  4. [PSS GPN] DEXAMETHASONE SOLUTION FOR INFUSION DOSETTE VIAL 4 MG [Suspect]
     Indication: NON-HODGKIN'S LYMPHOMA
     Route: 048

REACTIONS (1)
  - VASCULITIS CEREBRAL [None]
